FAERS Safety Report 18441290 (Version 2)
Quarter: 2020Q4

REPORT INFORMATION
  Report Type: Spontaneous
  Country: AU (occurrence: AU)
  Receive Date: 20201029
  Receipt Date: 20201216
  Transmission Date: 20210114
  Serious: No
  Sender: FDA-Public Use
  Company Number: AU-TOLMAR, INC.-20AU023533

PATIENT
  Sex: Male

DRUGS (2)
  1. ELIGARD [Suspect]
     Active Substance: LEUPROLIDE ACETATE
     Indication: PRODUCT USED FOR UNKNOWN INDICATION
     Dosage: 7.5 MG, Q 1 MONTH
     Route: 065
     Dates: start: 20201021
  2. ELIGARD [Suspect]
     Active Substance: LEUPROLIDE ACETATE
     Dosage: 7.5 MG, Q 1 MONTH
     Route: 065

REACTIONS (3)
  - Needle issue [Unknown]
  - Device leakage [Unknown]
  - Product administration error [Unknown]

NARRATIVE: CASE EVENT DATE: 20201021
